FAERS Safety Report 7472383-X (Version None)
Quarter: 2011Q2

REPORT INFORMATION
  Report Type: 
  Country: None (occurrence: None)
  Receive Date: 20110511
  Receipt Date: 20110505
  Transmission Date: 20111010
  Serious: Yes (Death)
  Sender: FDA-Public Use
  Company Number: PHHY2011US38980

PATIENT
  Sex: Male

DRUGS (1)
  1. TOBI [Suspect]
     Indication: BRONCHIECTASIS
     Dosage: 300 MG, BID 28 DAYS ON 28 DAYS OFF
     Dates: start: 20090728

REACTIONS (1)
  - DEATH [None]
